FAERS Safety Report 4860145-9 (Version None)
Quarter: 2005Q4

REPORT INFORMATION
  Report Type: 
  Country: None (occurrence: None)
  Receive Date: 20051215
  Receipt Date: 20051209
  Transmission Date: 20060501
  Serious: Yes (Hospitalization)
  Sender: FDA-Public Use
  Company Number: 2005-04791

PATIENT
  Age: 58 Year
  Sex: Female
  Weight: 72.6 kg

DRUGS (9)
  1. PREDNISONE [Suspect]
     Indication: TEMPORAL ARTERITIS
     Dosage: 60 MG, TID THEN TAPER, ORAL
     Route: 048
     Dates: start: 20050801, end: 20051001
  2. UNSP, NERVE MEDICAITON [Concomitant]
  3. UNSP, PAIN MEDICATION [Concomitant]
  4. ZOCOR [Concomitant]
  5. TRAZODONE HCL [Concomitant]
  6. DILTIAZEM HCL [Concomitant]
  7. LEVOTHYROXINE SODIUM [Concomitant]
  8. FUROSEMIDE [Concomitant]
  9. PRAVACHOL [Concomitant]

REACTIONS (9)
  - BLOOD GLUCOSE INCREASED [None]
  - GASTROINTESTINAL DISORDER [None]
  - HERPES ZOSTER [None]
  - INSOMNIA [None]
  - LOCAL SWELLING [None]
  - MUSCLE SPASMS [None]
  - OEDEMA PERIPHERAL [None]
  - STOMACH DISCOMFORT [None]
  - SWELLING FACE [None]
